FAERS Safety Report 4449254-6 (Version None)
Quarter: 2004Q3

REPORT INFORMATION
  Report Type: 
  Country: None (occurrence: None)
  Receive Date: 20040910
  Receipt Date: 20040901
  Transmission Date: 20050211
  Serious: Yes (Life-Threatening, Other)
  Sender: FDA-Public Use
  Company Number: FRWYE763217MAY04

PATIENT
  Age: 65 Year
  Sex: Female

DRUGS (6)
  1. TAZOCILLINE (PIPERACILLIN/TAZOBACTAM, INJECTION) [Suspect]
     Indication: PERITONITIS
     Dosage: 4 G 4X PER 1 DAY
     Route: 042
     Dates: start: 20031205, end: 20040101
  2. OMEPRAZOLE [Suspect]
     Dosage: 20 MG 1X PER 1 DAY
     Route: 048
     Dates: start: 20031214, end: 20040101
  3. LEXOMIL (BROMAZEPAM) [Concomitant]
  4. PROZAC [Concomitant]
  5. STILNOX (ZOLPIDEM) [Concomitant]
  6. LOXEN (NICARDIPINE HYDROCHLORIDE) [Concomitant]

REACTIONS (4)
  - CHOLESTASIS [None]
  - DRUG HYPERSENSITIVITY [None]
  - DRUG RASH WITH EOSINOPHILIA AND SYSTEMIC SYMPTOMS [None]
  - LEUKOCYTOCLASTIC VASCULITIS [None]
